FAERS Safety Report 21190152 (Version 7)
Quarter: 2022Q4

REPORT INFORMATION
  Report Type: Spontaneous
  Country: US (occurrence: US)
  Receive Date: 20220809
  Receipt Date: 20221202
  Transmission Date: 20230113
  Serious: No
  Sender: FDA-Public Use
  Company Number: US-UNITED THERAPEUTICS-UNT-2022-014486

PATIENT
  Sex: Female

DRUGS (9)
  1. TYVASO [Suspect]
     Active Substance: TREPROSTINIL
     Indication: Pulmonary arterial hypertension
     Dosage: UNK
     Dates: start: 20220517
  2. TYVASO [Suspect]
     Active Substance: TREPROSTINIL
     Dosage: 18 ?G, QID
     Dates: start: 202206, end: 2022
  3. TYVASO [Suspect]
     Active Substance: TREPROSTINIL
     Dosage: 18 ?G, TID
     Dates: start: 2022, end: 2022
  4. TYVASO [Suspect]
     Active Substance: TREPROSTINIL
     Dosage: 24 ?G, QID
     Dates: start: 2022
  5. TYVASO [Suspect]
     Active Substance: TREPROSTINIL
     Dosage: 30 ?G, QID
     Dates: start: 2022
  6. TYVASO [Suspect]
     Active Substance: TREPROSTINIL
     Dosage: 18 ?G, QID
     Dates: start: 2022
  7. ALBUTEROL [Suspect]
     Active Substance: ALBUTEROL
     Indication: Wheezing
     Dosage: UNK
     Route: 065
  8. DUPIXENT [Concomitant]
     Active Substance: DUPILUMAB
     Indication: Asthma
     Dosage: UNK, EVERY OTHER WEEK
     Route: 058
     Dates: start: 20220120
  9. PREDNISONE [Concomitant]
     Active Substance: PREDNISONE
     Indication: Product used for unknown indication
     Dosage: UNK
     Route: 065
     Dates: end: 2022

REACTIONS (26)
  - Throat irritation [Unknown]
  - Panic attack [Unknown]
  - Dyspnoea [Recovering/Resolving]
  - Pain in extremity [Recovering/Resolving]
  - Pain [Not Recovered/Not Resolved]
  - Breast pain [Unknown]
  - Musculoskeletal pain [Unknown]
  - Micturition urgency [Unknown]
  - Back pain [Recovered/Resolved]
  - Asthma [Not Recovered/Not Resolved]
  - Chest pain [Recovering/Resolving]
  - Chest discomfort [Not Recovered/Not Resolved]
  - Headache [Unknown]
  - Pollakiuria [Unknown]
  - Urine output decreased [Unknown]
  - Dyspnoea exertional [Not Recovered/Not Resolved]
  - Abdominal distension [Unknown]
  - Wheezing [Not Recovered/Not Resolved]
  - Cough [Unknown]
  - Malaise [Recovering/Resolving]
  - Nasopharyngitis [Unknown]
  - Suffocation feeling [Unknown]
  - Dysphonia [Unknown]
  - Therapy non-responder [Unknown]
  - Product dose omission issue [Unknown]
  - Wrong technique in product usage process [Unknown]

NARRATIVE: CASE EVENT DATE: 20220101
